FAERS Safety Report 18838151 (Version 1)
Quarter: 2021Q1

REPORT INFORMATION
  Report Type: Spontaneous
  Country: US (occurrence: US)
  Receive Date: 20210203
  Receipt Date: 20210203
  Transmission Date: 20210419
  Serious: No
  Sender: FDA-Public Use
  Company Number: US-BRISTOL-MYERS SQUIBB COMPANY-BMS-2021-005095

PATIENT
  Age: 63 Year
  Sex: Female
  Weight: 54.43 kg

DRUGS (6)
  1. LYRICA [Concomitant]
     Active Substance: PREGABALIN
     Indication: NEUROPATHY PERIPHERAL
     Dosage: UNK
     Route: 065
  2. HYDROMORPHONE [Concomitant]
     Active Substance: HYDROMORPHONE
     Indication: PRODUCT USED FOR UNKNOWN INDICATION
     Dosage: UNK
     Route: 065
  3. CLONAZEPAM. [Concomitant]
     Active Substance: CLONAZEPAM
     Indication: PRODUCT USED FOR UNKNOWN INDICATION
     Dosage: UNK
     Route: 065
  4. HYDROCORTISONE. [Concomitant]
     Active Substance: HYDROCORTISONE
     Indication: ADRENAL INSUFFICIENCY
     Dosage: UNK
     Route: 065
  5. YERVOY [Suspect]
     Active Substance: IPILIMUMAB
     Indication: LUNG CARCINOMA CELL TYPE UNSPECIFIED STAGE IV
     Dosage: UNK, EVERY 6 WEEKS
     Route: 042
     Dates: start: 202011
  6. OPDIVO [Suspect]
     Active Substance: NIVOLUMAB
     Indication: LUNG CARCINOMA CELL TYPE UNSPECIFIED STAGE IV
     Dosage: UNK, EVERY 2 WEEKS
     Route: 042
     Dates: start: 202011

REACTIONS (10)
  - Paraesthesia [Unknown]
  - Musculoskeletal stiffness [Unknown]
  - Pruritus [Unknown]
  - Rash [Unknown]
  - Hypoaesthesia [Unknown]
  - Joint stiffness [Unknown]
  - Feeling hot [Unknown]
  - Arthralgia [Unknown]
  - Pain in extremity [Unknown]
  - Inflammation [Unknown]

NARRATIVE: CASE EVENT DATE: 202012
